FAERS Safety Report 7250419-9 (Version None)
Quarter: 2011Q1

REPORT INFORMATION
  Report Type: 
  Country: None (occurrence: None)
  Receive Date: 20110119
  Receipt Date: 20110110
  Transmission Date: 20110831
  Serious: Yes (Hospitalization)
  Sender: FDA-Public Use
  Company Number: 2010EU006311

PATIENT
  Sex: Male

DRUGS (1)
  1. FK506 - OINTMENT (TACROLIMUS) OINTMENT [Suspect]
     Indication: DERMATITIS ATOPIC
     Dosage: 0.03%
     Dates: start: 20080606

REACTIONS (1)
  - HOSPITALISATION [None]
